FAERS Safety Report 7290389-0 (Version None)
Quarter: 2011Q1

REPORT INFORMATION
  Report Type: 
  Country: None (occurrence: None)
  Receive Date: 20110214
  Receipt Date: 20110201
  Transmission Date: 20110831
  Serious: Yes (Other)
  Sender: FDA-Public Use
  Company Number: PHHY2011BR08374

PATIENT
  Sex: Female

DRUGS (4)
  1. SOMALGIN CARDIO [Concomitant]
     Indication: BLOOD DISORDER
     Dosage: 1 DF, QD
     Route: 048
     Dates: start: 20101028
  2. DIOVAN [Suspect]
     Indication: HYPERTENSION
     Dosage: 1 DF, QD
     Route: 048
     Dates: start: 20100701
  3. CRESTOR [Concomitant]
     Indication: BLOOD CHOLESTEROL ABNORMAL
     Dosage: 1 DF, QD
     Route: 048
     Dates: start: 20101101
  4. ANGIPRESS CD [Concomitant]
     Indication: HYPERTENSION
     Dosage: 1 DF, QD
     Route: 048
     Dates: start: 20060101

REACTIONS (4)
  - FEELING ABNORMAL [None]
  - CHEST PAIN [None]
  - VEIN DISORDER [None]
  - HYPERTENSION [None]
